FAERS Safety Report 17980845 (Version 4)
Quarter: 2020Q3

REPORT INFORMATION
  Report Type: Spontaneous
  Country: ES (occurrence: ES)
  Receive Date: 20200704
  Receipt Date: 20200811
  Transmission Date: 20201103
  Serious: Yes (Life-Threatening, Hospitalization, Other)
  Sender: FDA-Public Use
  Company Number: ES-AUROBINDO-AUR-APL-2020-031748

PATIENT
  Age: 78 Year
  Sex: Male

DRUGS (10)
  1. TOCILIZUMAB. [Concomitant]
     Active Substance: TOCILIZUMAB
     Indication: PYREXIA
  2. MORPHINE [Suspect]
     Active Substance: MORPHINE
     Indication: DYSPNOEA
     Dosage: 3 MILLIGRAM,SINGLE ADMINISTRATION (1 TOTA)L
     Route: 065
  3. HYDROXYCHLOROQUINE [Concomitant]
     Active Substance: HYDROXYCHLOROQUINE
     Indication: COVID-19 TREATMENT
     Dosage: 200 MILLIGRAM, TWO TIMES A DAY
     Route: 065
  4. TOCILIZUMAB. [Concomitant]
     Active Substance: TOCILIZUMAB
     Indication: COVID-19
     Dosage: 2 MILLIGRAM, ONCE A DAY
     Route: 048
  5. INTERFERON BETA 1B [Concomitant]
     Active Substance: INTERFERON BETA-1B
     Indication: COVID-19
     Dosage: UNK
     Route: 065
  6. RISPERIDONE. [Suspect]
     Active Substance: RISPERIDONE
     Indication: DELIRIUM
     Dosage: 1 MILLIGRAM, TWO TIMES A DAY
     Route: 065
  7. OXYGEN. [Concomitant]
     Active Substance: OXYGEN
     Indication: COVID-19
     Dosage: UNK
     Route: 065
  8. LOPINAVIR/RITONAVIR [Suspect]
     Active Substance: LOPINAVIR\RITONAVIR
     Indication: COVID-19 TREATMENT
     Dosage: UNK, ONCE A DAY (400MG/100MG)
     Route: 048
  9. LOPINAVIR/RITONAVIR [Suspect]
     Active Substance: LOPINAVIR\RITONAVIR
     Indication: COVID-19
     Dosage: UNK, TWO TIMES A DAY
     Route: 065
  10. HYDROXYCHLOROQUINE [Concomitant]
     Active Substance: HYDROXYCHLOROQUINE
     Indication: COVID-19

REACTIONS (12)
  - Myoclonus [Recovered/Resolved]
  - Hyperhidrosis [Recovered/Resolved]
  - Blood creatinine increased [Recovered/Resolved]
  - Hyperreflexia [Recovered/Resolved]
  - Off label use [Unknown]
  - Encephalopathy [Recovered/Resolved]
  - Clonus [Recovered/Resolved]
  - Cogwheel rigidity [Recovered/Resolved]
  - Serotonin syndrome [Recovered/Resolved]
  - Hyperthermia [Recovered/Resolved]
  - Condition aggravated [Recovered/Resolved]
  - Tachycardia [Recovered/Resolved]
